FAERS Safety Report 5749120-X (Version None)
Quarter: 2008Q2

REPORT INFORMATION
  Report Type: 
  Country: None (occurrence: None)
  Receive Date: 20080521
  Receipt Date: 20080521
  Transmission Date: 20081010
  Serious: No
  Sender: FDA-Public Use
  Company Number: None

PATIENT
  Age: 36 Year
  Sex: Female

DRUGS (2)
  1. RISPERDAL [Suspect]
     Dosage: TABLET
  2. REQUIP [Suspect]
     Dosage: TABLET

REACTIONS (5)
  - DIZZINESS [None]
  - DRUG DISPENSING ERROR [None]
  - HYPOAESTHESIA [None]
  - MEDICATION ERROR [None]
  - PARAESTHESIA [None]
